FAERS Safety Report 16387146 (Version 3)
Quarter: 2020Q1

REPORT INFORMATION
  Report Type: Spontaneous
  Country: FR (occurrence: FR)
  Receive Date: 20190604
  Receipt Date: 20200213
  Transmission Date: 20200409
  Serious: Yes (Hospitalization, Other)
  Sender: FDA-Public Use
  Company Number: FR-AUROBINDO-AUR-APL-2019-030475

PATIENT
  Age: 64 Year
  Sex: Male
  Weight: 81 kg

DRUGS (7)
  1. METFORMIN [Concomitant]
     Active Substance: METFORMIN HYDROCHLORIDE
     Indication: TYPE 2 DIABETES MELLITUS
     Dosage: UNK
     Route: 065
  2. ACICLOVIR [Suspect]
     Active Substance: ACYCLOVIR
     Dosage: 750 MILLIGRAM FOR 8 HOUR
     Route: 065
  3. ACICLOVIR [Suspect]
     Active Substance: ACYCLOVIR
     Dosage: 500 MILLIGRAM FOR 8 HOUR
     Route: 065
  4. ACICLOVIR [Suspect]
     Active Substance: ACYCLOVIR
     Dosage: 15 MILLIGRAM/KILOGRAM FOR 8 HR
     Route: 065
  5. AMOXICILLIN. [Concomitant]
     Active Substance: AMOXICILLIN
     Indication: ENCEPHALITIS
     Dosage: 12 GRAM, ONCE A DAY
     Route: 065
  6. ACICLOVIR [Suspect]
     Active Substance: ACYCLOVIR
     Indication: ENCEPHALITIS
     Dosage: UNK
     Route: 065
     Dates: start: 20180329
  7. ACICLOVIR [Suspect]
     Active Substance: ACYCLOVIR
     Dosage: 3.33 MG/ML ,3*1 GR ACYCLOVIR DILUTED IN 300 ML OF SERUM SALINE
     Route: 065
     Dates: end: 20180406

REACTIONS (8)
  - Acute kidney injury [Recovered/Resolved]
  - Blood creatinine increased [Unknown]
  - Speech disorder [Recovering/Resolving]
  - Confusional state [Recovering/Resolving]
  - Dizziness [Recovering/Resolving]
  - Gait disturbance [Unknown]
  - Dyspepsia [Unknown]
  - Aphasia [Recovering/Resolving]

NARRATIVE: CASE EVENT DATE: 20180406
